FAERS Safety Report 9217379 (Version 1)
Quarter: 2013Q2

REPORT INFORMATION
  Report Type: Report from Study
  Country: PL (occurrence: PL)
  Receive Date: 20130408
  Receipt Date: 20130408
  Transmission Date: 20140414
  Serious: Yes (Death)
  Sender: FDA-Public Use
  Company Number: PL-ROCHE-1209948

PATIENT
  Age: 82 Year
  Sex: Male

DRUGS (1)
  1. RITUXIMAB [Suspect]
     Indication: MALIGNANT LYMPHOID NEOPLASM
     Route: 065
     Dates: end: 20100917

REACTIONS (1)
  - Cardiovascular disorder [Fatal]
